FAERS Safety Report 15949473 (Version 1)
Quarter: 2019Q1

REPORT INFORMATION
  Report Type: Spontaneous
  Country: US (occurrence: US)
  Receive Date: 20190211
  Receipt Date: 20190211
  Transmission Date: 20190417
  Serious: No
  Sender: FDA-Public Use
  Company Number: US-PERRIGO-18US012059

PATIENT
  Age: 12 Year
  Sex: Female
  Weight: 57.6 kg

DRUGS (1)
  1. IBUPROFEN. [Suspect]
     Active Substance: IBUPROFEN
     Indication: PREMENSTRUAL PAIN
     Dosage: 300 MG, PRN
     Route: 048
     Dates: start: 2007

REACTIONS (2)
  - Off label use [Not Recovered/Not Resolved]
  - Product administered to patient of inappropriate age [Not Recovered/Not Resolved]

NARRATIVE: CASE EVENT DATE: 2007
